FAERS Safety Report 4642627-8 (Version None)
Quarter: 2005Q2

REPORT INFORMATION
  Report Type: 
  Country: None (occurrence: None)
  Receive Date: 20050422
  Receipt Date: 20050314
  Transmission Date: 20051028
  Serious: Yes (Hospitalization)
  Sender: FDA-Public Use
  Company Number: PHEH2005US03124

PATIENT
  Age: 63 Year
  Sex: Male

DRUGS (3)
  1. ELIDEL [Suspect]
     Indication: ECZEMA
     Dosage: UNK, BID INFREQUENTLY
     Route: 061
     Dates: start: 20031101, end: 20041101
  2. ELOCON [Concomitant]
  3. ALLEGRA [Concomitant]

REACTIONS (5)
  - ABDOMINAL PAIN [None]
  - ABDOMINAL PAIN UPPER [None]
  - DIFFUSE LARGE B-CELL LYMPHOMA [None]
  - NAUSEA [None]
  - PANCREATIC MASS [None]
